FAERS Safety Report 8625496-0 (Version None)
Quarter: 2012Q3

REPORT INFORMATION
  Report Type: 
  Country: None (occurrence: None)
  Receive Date: 20120827
  Receipt Date: 20111004
  Transmission Date: 20120928
  Serious: Yes (Hospitalization)
  Sender: FDA-Public Use
  Company Number: FR-ROCHE-1002093

PATIENT
  Sex: Male

DRUGS (3)
  1. VALGANCICLOVIR [Suspect]
     Indication: PRODUCT USED FOR UNKNOWN INDICATION
     Route: 048
     Dates: start: 20110727, end: 20110805
  2. GANCICLOVIR SODIUM [Suspect]
     Indication: PRODUCT USED FOR UNKNOWN INDICATION
     Route: 042
     Dates: start: 20110723, end: 20110727
  3. GANCICLOVIR SODIUM [Suspect]
     Route: 042
     Dates: start: 20110806, end: 20110814

REACTIONS (2)
  - NEUTROPENIA [None]
  - ENTEROCOLITIS [None]
